FAERS Safety Report 9217217 (Version 2)
Quarter: 2013Q2

REPORT INFORMATION
  Report Type: Report from Study
  Country: DE (occurrence: DE)
  Receive Date: 20130408
  Receipt Date: 20130424
  Transmission Date: 20140414
  Serious: Yes (Hospitalization)
  Sender: FDA-Public Use
  Company Number: DE-ROCHE-1207589

PATIENT
  Age: 74 Year
  Sex: Male
  Weight: 72.8 kg

DRUGS (6)
  1. CAPECITABINE [Suspect]
     Indication: COLORECTAL CANCER METASTATIC
     Dosage: LAST DOSE PRIOR TO SAE 24/MAR/2013
     Route: 048
     Dates: start: 20120504, end: 20130409
  2. BEVACIZUMAB [Suspect]
     Indication: COLORECTAL CANCER METASTATIC
     Dosage: LAST DOSE PRIOR TO SAE 08/MAR/2013
     Route: 042
     Dates: start: 20120504, end: 20130409
  3. PRAVASTATIN SODIUM [Concomitant]
     Route: 065
  4. TAMSULOSIN [Concomitant]
     Route: 065
  5. SPIRONOLACTONE [Concomitant]
     Route: 065
  6. PANTOZOL [Concomitant]
     Route: 065

REACTIONS (2)
  - Ascites [Not Recovered/Not Resolved]
  - Oedema [Not Recovered/Not Resolved]
